FAERS Safety Report 24269479 (Version 2)
Quarter: 2024Q4

REPORT INFORMATION
  Report Type: Report from Study
  Country: CA (occurrence: CA)
  Receive Date: 20240830
  Receipt Date: 20241213
  Transmission Date: 20250114
  Serious: Yes (Other)
  Sender: GLAXOSMITHKLINE
  Company Number: CA-GLAXOSMITHKLINE-CA2023174554

PATIENT

DRUGS (1)
  1. MEPOLIZUMAB [Suspect]
     Active Substance: MEPOLIZUMAB
     Indication: Asthma
     Dosage: 100 MG, Q4W
     Route: 058
     Dates: start: 20191105

REACTIONS (7)
  - Lumbar vertebral fracture [Recovering/Resolving]
  - Large intestine perforation [Unknown]
  - Headache [Unknown]
  - Gastroenteritis [Recovering/Resolving]
  - Muscular weakness [Unknown]
  - Asthma [Unknown]
  - Amnesia [Unknown]

NARRATIVE: CASE EVENT DATE: 20240701
